FAERS Safety Report 8047624-0 (Version None)
Quarter: 2012Q1

REPORT INFORMATION
  Report Type: 
  Country: None (occurrence: None)
  Receive Date: 20120116
  Receipt Date: 20120106
  Transmission Date: 20120608
  Serious: Yes (Hospitalization)
  Sender: FDA-Public Use
  Company Number: CZ-GLAXOSMITHKLINE-B0771836A

PATIENT
  Sex: Female
  Weight: 96 kg

DRUGS (2)
  1. LAPATINIB [Suspect]
     Indication: BREAST CANCER METASTATIC
     Dosage: 1250MG PER DAY
     Route: 048
     Dates: start: 20080513
  2. CAPECITABINE [Suspect]
     Indication: BREAST CANCER METASTATIC
     Dosage: 4000MG PER DAY
     Route: 048
     Dates: start: 20080513, end: 20090629

REACTIONS (2)
  - PANCREATITIS [None]
  - ABDOMINAL DISCOMFORT [None]
